FAERS Safety Report 7018667-0 (Version None)
Quarter: 2010Q3

REPORT INFORMATION
  Report Type: 
  Country: None (occurrence: None)
  Receive Date: 20100922
  Receipt Date: 20100908
  Transmission Date: 20110219
  Serious: Yes (Hospitalization, Other)
  Sender: FDA-Public Use
  Company Number: 2010P1001351

PATIENT
  Age: 54 Year
  Sex: Female
  Weight: 147.419 kg

DRUGS (6)
  1. FENTANYL [Suspect]
     Indication: BACK PAIN
     Dosage: 75 MCG/HR;Q72H;TDER
     Route: 062
     Dates: start: 20100101
  2. TYLENOL-500 [Concomitant]
  3. THEOPHYLLINE [Concomitant]
  4. SYMBICORT [Concomitant]
  5. VENTOLIN [Concomitant]
  6. AGGRENOX [Concomitant]

REACTIONS (4)
  - ACUTE STRESS DISORDER [None]
  - CONVULSION [None]
  - DRUG EFFECT DECREASED [None]
  - THROAT IRRITATION [None]
